FAERS Safety Report 7819983-2 (Version None)
Quarter: 2011Q4

REPORT INFORMATION
  Report Type: 
  Country: None (occurrence: None)
  Receive Date: 20111018
  Receipt Date: 20111013
  Transmission Date: 20120403
  Serious: Yes (Hospitalization)
  Sender: FDA-Public Use
  Company Number: US-VERTEX PHARMACEUTICALS INC.-AE-2011-001218

PATIENT

DRUGS (3)
  1. RIBAVIRIN [Concomitant]
     Indication: HEPATITIS C
  2. INCIVEK [Suspect]
     Indication: HEPATITIS C
     Dates: start: 20110101
  3. PEGASYS [Concomitant]
     Indication: HEPATITIS C

REACTIONS (4)
  - HEPATIC ENCEPHALOPATHY [None]
  - LIPASE ABNORMAL [None]
  - HEPATIC FAILURE [None]
  - RENAL FAILURE ACUTE [None]
